FAERS Safety Report 9677769 (Version 1)
Quarter: 2013Q4

REPORT INFORMATION
  Report Type: Spontaneous
  Country: US (occurrence: None)
  Receive Date: 20131107
  Receipt Date: 20131107
  Transmission Date: 20140711
  Serious: No
  Sender: FDA-Public Use
  Company Number: None

PATIENT
  Age: 59 Year
  Sex: Female
  Weight: 98 kg

DRUGS (2)
  1. CUBICIN [Suspect]
     Indication: OSTEOMYELITIS
     Route: 042
     Dates: start: 20131011, end: 20131106
  2. CUBICIN [Suspect]
     Indication: DIABETIC FOOT
     Route: 042
     Dates: start: 20131011, end: 20131106

REACTIONS (1)
  - Blood creatine phosphokinase increased [None]
